FAERS Safety Report 13075136 (Version 3)
Quarter: 2017Q2

REPORT INFORMATION
  Report Type: Report from Study
  Country: GB (occurrence: GB)
  Receive Date: 20161230
  Receipt Date: 20170626
  Transmission Date: 20170830
  Serious: Yes (Death, Hospitalization, Congenital Anomaly)
  Sender: FDA-Public Use
  Company Number: PHHO2016GB018983

PATIENT
  Age: 68 Year
  Sex: Female
  Weight: 55.1 kg

DRUGS (7)
  1. CALCICHEW D3 [Concomitant]
     Active Substance: CALCIUM\CHOLECALCIFEROL
     Indication: METASTASES TO BONE
     Dosage: 1 DF, BID
     Route: 048
     Dates: start: 20160315, end: 20161221
  2. PARACETAMOL [Concomitant]
     Active Substance: ACETAMINOPHEN
     Indication: HEADACHE
     Dosage: 1 G, PRN
     Route: 048
     Dates: start: 20160824
  3. DEXAMETHASONE. [Suspect]
     Active Substance: DEXAMETHASONE
     Indication: METASTASES TO CENTRAL NERVOUS SYSTEM
     Dosage: 4 MG, QD
     Route: 048
     Dates: start: 20161124, end: 20161221
  4. SENNA [Concomitant]
     Active Substance: SENNA LEAF\SENNOSIDES\SENNOSIDES A AND B
     Indication: CONSTIPATION
     Dosage: 2.5 MG, NOCTO
     Route: 065
     Dates: start: 20161220, end: 20161221
  5. KEPPRA [Suspect]
     Active Substance: LEVETIRACETAM
     Indication: SEIZURE
     Dosage: 500 MG, QD
     Route: 048
     Dates: start: 20161115, end: 20161221
  6. LDK378 [Suspect]
     Active Substance: CERITINIB
     Indication: NON-SMALL CELL LUNG CANCER
     Dosage: 750 MG, QD
     Route: 048
     Dates: start: 20161129, end: 20161220
  7. OMEPRAZOLE. [Concomitant]
     Active Substance: OMEPRAZOLE
     Indication: PROPHYLAXIS
     Dosage: 40 MG, QD
     Route: 048
     Dates: start: 20160315, end: 20161221

REACTIONS (7)
  - Aphasia [Not Recovered/Not Resolved]
  - Colonic abscess [Not Recovered/Not Resolved]
  - Abdominal pain [Not Recovered/Not Resolved]
  - Second primary malignancy [Fatal]
  - Dehydration [Not Recovered/Not Resolved]
  - Lung neoplasm malignant [Fatal]
  - Metastases to central nervous system [Fatal]

NARRATIVE: CASE EVENT DATE: 20161221
